FAERS Safety Report 11111802 (Version 1)
Quarter: 2015Q2

REPORT INFORMATION
  Report Type: Spontaneous
  Country: ZA (occurrence: None)
  Receive Date: 20150512
  Receipt Date: 20150512
  Transmission Date: 20150821
  Serious: Yes (Life-Threatening)
  Sender: FDA-Public Use
  Company Number: None

PATIENT
  Age: 57 Year
  Sex: Male
  Weight: 110 kg

DRUGS (1)
  1. INFLAMMIDE 200 15ML BOEHRINGER INGELHEIM [Suspect]
     Active Substance: BUDESONIDE
     Indication: INFLAMMATION
     Dosage: SINGLE DOSE
     Route: 055
     Dates: start: 20150304, end: 20150304

REACTIONS (8)
  - Poor quality sleep [None]
  - Discomfort [None]
  - Pain in extremity [None]
  - Musculoskeletal pain [None]
  - Paraesthesia [None]
  - Multiple sclerosis relapse [None]
  - Pain [None]
  - Arthralgia [None]

NARRATIVE: CASE EVENT DATE: 20150304
